FAERS Safety Report 20523948 (Version 1)
Quarter: 2022Q1

REPORT INFORMATION
  Report Type: Spontaneous
  Country: US (occurrence: US)
  Receive Date: 20220228
  Receipt Date: 20220228
  Transmission Date: 20220423
  Serious: No
  Sender: FDA-Public Use
  Company Number: US-RECORDATI RARE DISEASE INC.-2021001009

PATIENT

DRUGS (1)
  1. CYSTADANE [Suspect]
     Active Substance: BETAINE
     Indication: Homocystinuria

REACTIONS (5)
  - Headache [Unknown]
  - Weight decreased [Unknown]
  - Tremor [Unknown]
  - Abdominal discomfort [Unknown]
  - Diarrhoea [Unknown]
